FAERS Safety Report 9428921 (Version 1)
Quarter: 2013Q3

REPORT INFORMATION
  Report Type: Spontaneous
  Country: US (occurrence: US)
  Receive Date: 20130730
  Receipt Date: 20130730
  Transmission Date: 20140515
  Serious: No
  Sender: FDA-Public Use
  Company Number: US-ABBOTT-12P-163-1009743-00

PATIENT
  Age: 64 Year
  Sex: Male
  Weight: 85.81 kg

DRUGS (1)
  1. NIASPAN (COATED) [Suspect]
     Indication: PRODUCT USED FOR UNKNOWN INDICATION
     Dates: start: 201211

REACTIONS (2)
  - Paraesthesia [Not Recovered/Not Resolved]
  - Flushing [Unknown]
